FAERS Safety Report 17020586 (Version 1)
Quarter: 2019Q4

REPORT INFORMATION
  Report Type: Spontaneous
  Country: CH (occurrence: CH)
  Receive Date: 20191112
  Receipt Date: 20191112
  Transmission Date: 20200122
  Serious: Yes (Hospitalization, Other)
  Sender: FDA-Public Use
  Company Number: CH-TEVA-2019-CH-1133768

PATIENT
  Age: 53 Year
  Sex: Female
  Weight: 106 kg

DRUGS (4)
  1. ESCITALOPRAM MEPHA 5 MG [Suspect]
     Active Substance: ESCITALOPRAM OXALATE
     Route: 065
     Dates: start: 20190601
  2. REAGILA [Suspect]
     Active Substance: CARIPRAZINE
     Route: 048
     Dates: start: 20190601, end: 20190930
  3. LEPONEX [Suspect]
     Active Substance: CLOZAPINE
     Dosage: 2-0-0-3, 100MG
     Route: 048
     Dates: start: 20190501, end: 20190930
  4. NOPIL FORTE [Suspect]
     Active Substance: SULFAMETHOXAZOLE\TRIMETHOPRIM
     Dosage: 800/600MG
     Route: 065
     Dates: start: 20190927, end: 20190930

REACTIONS (1)
  - Acute kidney injury [Recovered/Resolved]

NARRATIVE: CASE EVENT DATE: 20190929
